FAERS Safety Report 6609437-3 (Version None)
Quarter: 2010Q1

REPORT INFORMATION
  Report Type: 
  Country: None (occurrence: None)
  Receive Date: 20100302
  Receipt Date: 20100218
  Transmission Date: 20100710
  Serious: Yes (Death, Hospitalization)
  Sender: FDA-Public Use
  Company Number: US-WYE-H13729010

PATIENT
  Age: 58 Year
  Sex: Female

DRUGS (1)
  1. VENLAFAXINE HCL [Suspect]
     Dosage: OVERDOSE AMOUNT OF APPROXIMATELY ONE HUNDRED 150 MG TABLETS
     Route: 048
     Dates: start: 20080101, end: 20080101

REACTIONS (10)
  - BEZOAR [None]
  - CARDIAC ARREST [None]
  - CARDIAC FAILURE [None]
  - COMPLETED SUICIDE [None]
  - CONVULSION [None]
  - HYPOTENSION [None]
  - INTENTIONAL OVERDOSE [None]
  - MENTAL STATUS CHANGES [None]
  - SKIN LACERATION [None]
  - SUPRAVENTRICULAR TACHYCARDIA [None]
